FAERS Safety Report 18317374 (Version 2)
Quarter: 2020Q4

REPORT INFORMATION
  Report Type: Spontaneous
  Country: CN (occurrence: CN)
  Receive Date: 20200928
  Receipt Date: 20201016
  Transmission Date: 20210113
  Serious: Yes (Hospitalization, Other)
  Sender: FDA-Public Use
  Company Number: CN-LUPIN PHARMACEUTICALS INC.-2020-06430

PATIENT
  Age: 4 Year
  Sex: Female

DRUGS (10)
  1. IBUPROFEN. [Suspect]
     Active Substance: IBUPROFEN
     Indication: TONSILLITIS
     Dosage: UNK
     Route: 065
     Dates: start: 2018
  2. PHENOBARBITAL. [Concomitant]
     Active Substance: PHENOBARBITAL
     Indication: HEPATIC ENZYME ABNORMAL
     Dosage: UNK
     Route: 065
     Dates: start: 2018
  3. URSODEOXYCHOLIC ACID [Concomitant]
     Active Substance: URSODIOL
     Indication: VANISHING BILE DUCT SYNDROME
     Dosage: UNK
     Route: 065
     Dates: start: 2018
  4. AZITHROMYCIN ANHYDROUS. [Suspect]
     Active Substance: AZITHROMYCIN ANHYDROUS
     Indication: TONSILLITIS
     Dosage: 10 MILLIGRAM/KILOGRAM, QD
     Route: 065
     Dates: start: 2018
  5. METHYLPREDNISOLONE. [Suspect]
     Active Substance: METHYLPREDNISOLONE
     Dosage: 2 MILLIGRAM/KILOGRAM, QD
     Route: 065
  6. PLASMA [Concomitant]
     Active Substance: HUMAN PLASMA
     Indication: SUPPORTIVE CARE
     Dosage: UNK
     Route: 065
     Dates: start: 2018
  7. CEFIXIME. [Suspect]
     Active Substance: CEFIXIME
     Indication: TONSILLITIS
     Dosage: UNK
     Route: 048
     Dates: start: 2018
  8. METHYLPREDNISOLONE. [Suspect]
     Active Substance: METHYLPREDNISOLONE
     Route: 065
     Dates: start: 2018
  9. GLYCYRRHIZIN [GLYCYRRHIZIC ACID] [Concomitant]
     Active Substance: GLYCYRRHIZIN
     Indication: VANISHING BILE DUCT SYNDROME
     Dosage: UNK
     Route: 065
     Dates: start: 2018
  10. ADEMETIONINE [Concomitant]
     Active Substance: ADEMETIONINE
     Indication: VANISHING BILE DUCT SYNDROME
     Dosage: UNK
     Route: 065
     Dates: start: 2018

REACTIONS (2)
  - Condition aggravated [Recovered/Resolved]
  - Vanishing bile duct syndrome [Recovered/Resolved]

NARRATIVE: CASE EVENT DATE: 2018
